FAERS Safety Report 7331515-4 (Version None)
Quarter: 2011Q1

REPORT INFORMATION
  Report Type: 
  Country: None (occurrence: None)
  Receive Date: 20110228
  Receipt Date: 20110228
  Transmission Date: 20110831
  Serious: Yes (Life-Threatening)
  Sender: FDA-Public Use
  Company Number: None

PATIENT
  Age: 39 Year
  Sex: Female
  Weight: 63.5036 kg

DRUGS (1)
  1. AVELOX [Suspect]
     Indication: SINUSITIS

REACTIONS (4)
  - TRANSIENT ISCHAEMIC ATTACK [None]
  - LIP SWELLING [None]
  - CHEST DISCOMFORT [None]
  - SWOLLEN TONGUE [None]
